FAERS Safety Report 19182660 (Version 2)
Quarter: 2021Q2

REPORT INFORMATION
  Report Type: Spontaneous
  Country: DE (occurrence: DE)
  Receive Date: 20210426
  Receipt Date: 20210610
  Transmission Date: 20210717
  Serious: Yes (Hospitalization, Other)
  Sender: FDA-Public Use
  Company Number: DE-INSUD PHARMA-2104DE00408

PATIENT
  Age: 35 Year
  Sex: Female

DRUGS (6)
  1. TRIPTOFEM [Suspect]
     Active Substance: TRIPTORELIN ACETATE
     Indication: ASSISTED REPRODUCTIVE TECHNOLOGY
  2. FYREMADEL [Suspect]
     Active Substance: GANIRELIX ACETATE
     Indication: ASSISTED REPRODUCTIVE TECHNOLOGY
  3. FAMENITA [Suspect]
     Active Substance: PROGESTERONE
     Indication: ASSISTED REPRODUCTIVE TECHNOLOGY
  4. GONAL?F [Suspect]
     Active Substance: FOLLITROPIN
     Indication: ASSISTED REPRODUCTIVE TECHNOLOGY
     Dosage: SOLUTION FOR INJECTION IN PRE?FILLED PEN
  5. CLEXANE [Concomitant]
     Active Substance: ENOXAPARIN SODIUM
  6. BREVACTID [Suspect]
     Active Substance: GONADOTROPHIN, CHORIONIC
     Indication: ASSISTED REPRODUCTIVE TECHNOLOGY

REACTIONS (1)
  - Ovarian hyperstimulation syndrome [Unknown]

NARRATIVE: CASE EVENT DATE: 20210213
